FAERS Safety Report 20816366 (Version 1)
Quarter: 2022Q2

REPORT INFORMATION
  Report Type: Report from Study
  Country: DE (occurrence: DE)
  Receive Date: 20220512
  Receipt Date: 20220512
  Transmission Date: 20220721
  Serious: No
  Sender: FDA-Public Use
  Company Number: DE-BRISTOL-MYERS SQUIBB COMPANY-2022-038391

PATIENT
  Age: 35 Year
  Sex: Female
  Weight: 71 kg

DRUGS (1)
  1. ZEPOSIA [Suspect]
     Active Substance: OZANIMOD HYDROCHLORIDE
     Indication: Multiple sclerosis
     Route: 048
     Dates: start: 20220221

REACTIONS (1)
  - Lymphopenia [Recovering/Resolving]

NARRATIVE: CASE EVENT DATE: 20220324
